FAERS Safety Report 4450421-6 (Version None)
Quarter: 2004Q3

REPORT INFORMATION
  Report Type: 
  Country: None (occurrence: None)
  Receive Date: 20040915
  Receipt Date: 20040910
  Transmission Date: 20050211
  Serious: Yes (Other)
  Sender: FDA-Public Use
  Company Number: 002676

PATIENT
  Age: 63 Year
  Sex: Female

DRUGS (5)
  1. MEDROXYPROGESTERONE ACETATE [Suspect]
     Dates: start: 20010109, end: 20020501
  2. PREMPRO [Suspect]
     Dates: start: 20010529, end: 20020201
  3. PREMARIN [Suspect]
     Dates: start: 19920101, end: 20020501
  4. PROVERA [Suspect]
     Dates: start: 19920101, end: 20020501
  5. ESTRATAB [Suspect]
     Dates: start: 19920101, end: 20020501

REACTIONS (1)
  - BREAST CANCER FEMALE [None]
